FAERS Safety Report 9214975 (Version 2)
Quarter: 2013Q4

REPORT INFORMATION
  Report Type: Spontaneous
  Country: US (occurrence: US)
  Receive Date: 20130405
  Receipt Date: 20131209
  Transmission Date: 20140711
  Serious: Yes (Other)
  Sender: FDA-Public Use
  Company Number: US-BAYER-2013-041322

PATIENT
  Age: 30 Year
  Sex: Female

DRUGS (11)
  1. YAZ [Suspect]
     Dosage: UNK
     Dates: start: 20050505, end: 20100402
  2. YASMIN [Suspect]
     Dosage: UNK
     Dates: start: 20050505, end: 20100402
  3. ATENOLOL [Concomitant]
     Dosage: UNK
     Route: 048
     Dates: start: 20070525
  4. LEVOTHYROXIN [Concomitant]
     Dosage: UNK
     Route: 048
     Dates: start: 20070604
  5. BACLOFEN [Concomitant]
     Dosage: UNK
     Dates: start: 20081215, end: 20090714
  6. BUPROPION [Concomitant]
     Dosage: UNK
     Dates: start: 20090220
  7. TRICOR [Concomitant]
     Dosage: UNK
     Dates: start: 20090320
  8. FLUCONAZOLE [Concomitant]
     Dosage: UNK
     Dates: start: 20090523
  9. HYDROCODONE [Concomitant]
     Dosage: UNK
     Route: 048
     Dates: start: 20090605, end: 20090714
  10. ACETAMINOPHEN [Concomitant]
     Dosage: UNK
     Route: 048
     Dates: start: 20090605, end: 20090714
  11. PREVACID [Concomitant]
     Dosage: UNK
     Dates: start: 20090628, end: 20090725

REACTIONS (6)
  - Cholelithiasis [None]
  - Injury [None]
  - Pain [None]
  - Emotional distress [None]
  - Anxiety [None]
  - Anhedonia [None]
